FAERS Safety Report 6810897-3 (Version None)
Quarter: 2010Q2

REPORT INFORMATION
  Report Type: 
  Country: None (occurrence: None)
  Receive Date: 20100630
  Receipt Date: 20080729
  Transmission Date: 20101027
  Serious: No
  Sender: FDA-Public Use
  Company Number: US-PFIZER INC-2008053688

PATIENT
  Sex: Female
  Weight: 52.272 kg

DRUGS (3)
  1. ESTRING [Suspect]
     Indication: OESTROGEN REPLACEMENT THERAPY
     Dosage: 7.5 MCG/24HR
     Route: 067
     Dates: start: 20080414, end: 20080625
  2. FEMARA [Concomitant]
  3. CELEXA [Concomitant]

REACTIONS (1)
  - VAGINAL DISCHARGE [None]
